FAERS Safety Report 4468152-5 (Version None)
Quarter: 2004Q4

REPORT INFORMATION
  Report Type: 
  Country: None (occurrence: None)
  Receive Date: 20041001
  Receipt Date: 20040916
  Transmission Date: 20050328
  Serious: Yes (Life-Threatening, Other)
  Sender: FDA-Public Use
  Company Number: C2003-1822.08

PATIENT
  Age: 22 Year
  Sex: Female

DRUGS (2)
  1. CYSTAGON [Suspect]
  2. CYSTEAMINE EYE DROPS SIGMA TAU [Suspect]

REACTIONS (1)
  - OPTIC DISC DRUSEN [None]
